FAERS Safety Report 19483417 (Version 7)
Quarter: 2021Q4

REPORT INFORMATION
  Report Type: Report from Study
  Country: US (occurrence: US)
  Receive Date: 20210701
  Receipt Date: 20211211
  Transmission Date: 20220303
  Serious: Yes (Other)
  Sender: FDA-Public Use
  Company Number: US-JNJFOC-20210338767

PATIENT
  Age: 64 Year
  Sex: Female
  Weight: 97.7 kg

DRUGS (11)
  1. SELEXIPAG [Suspect]
     Active Substance: SELEXIPAG
     Indication: Pulmonary arterial hypertension
     Route: 048
     Dates: start: 20210131
  2. SELEXIPAG [Suspect]
     Active Substance: SELEXIPAG
     Route: 048
  3. SELEXIPAG [Suspect]
     Active Substance: SELEXIPAG
     Route: 048
  4. SELEXIPAG [Suspect]
     Active Substance: SELEXIPAG
     Route: 048
  5. SELEXIPAG [Suspect]
     Active Substance: SELEXIPAG
     Dosage: 600 MCG IN THE AM, 800 MCG IN THE PM
     Route: 048
     Dates: start: 20210521
  6. SELEXIPAG [Suspect]
     Active Substance: SELEXIPAG
     Route: 048
  7. SELEXIPAG [Suspect]
     Active Substance: SELEXIPAG
     Route: 048
  8. SELEXIPAG [Suspect]
     Active Substance: SELEXIPAG
     Dosage: 800 MCG IN AM, 1000 MCG IN PM
     Route: 048
  9. SELEXIPAG [Suspect]
     Active Substance: SELEXIPAG
     Dosage: 200 MCG AND 800 MCG
     Route: 048
  10. TADALAFIL [Concomitant]
     Active Substance: TADALAFIL
  11. ATENOLOL [Concomitant]
     Active Substance: ATENOLOL
     Dates: start: 20210726

REACTIONS (45)
  - Pulmonary oedema [Unknown]
  - Hepatic cirrhosis [Unknown]
  - Cataract [Unknown]
  - Eye haemorrhage [Unknown]
  - Headache [Unknown]
  - Upper-airway cough syndrome [Unknown]
  - Eye disorder [Unknown]
  - Head discomfort [Unknown]
  - Pain in extremity [Not Recovered/Not Resolved]
  - Weight increased [Unknown]
  - Nasopharyngitis [Unknown]
  - Cough [Recovering/Resolving]
  - Varices oesophageal [Unknown]
  - Synovial cyst [Unknown]
  - Blood pressure systolic decreased [Unknown]
  - Diarrhoea [Recovering/Resolving]
  - Oedema peripheral [Unknown]
  - Joint swelling [Unknown]
  - Swelling [Unknown]
  - Decreased appetite [Unknown]
  - Eating disorder [Unknown]
  - Fluid retention [Recovering/Resolving]
  - Dizziness [Unknown]
  - Weight decreased [Unknown]
  - Feeling jittery [Unknown]
  - Palpitations [Unknown]
  - Joint swelling [Unknown]
  - Arthralgia [Unknown]
  - Haemorrhoids [Unknown]
  - Asthenia [Unknown]
  - Hypotension [Unknown]
  - Immune system disorder [Unknown]
  - Liver disorder [Unknown]
  - Night blindness [Unknown]
  - Peripheral swelling [Unknown]
  - Gout [Unknown]
  - Visual impairment [Unknown]
  - Gout [Unknown]
  - Pain in extremity [Unknown]
  - Limb mass [Unknown]
  - Nausea [Unknown]
  - Dyspnoea [Recovering/Resolving]
  - Pain [Recovering/Resolving]
  - Pyrexia [Recovering/Resolving]
  - Fatigue [Recovering/Resolving]

NARRATIVE: CASE EVENT DATE: 20210101
